FAERS Safety Report 4707182-2 (Version None)
Quarter: 2005Q3

REPORT INFORMATION
  Report Type: 
  Country: None (occurrence: None)
  Receive Date: 20050701
  Receipt Date: 20050615
  Transmission Date: 20060218
  Serious: Yes (Hospitalization, Other)
  Sender: FDA-Public Use
  Company Number: 2005EU000938

PATIENT
  Age: 42 Year
  Sex: Male

DRUGS (7)
  1. FK506 (TACROLIMUS CAPSULES) CAPSULE [Suspect]
     Indication: RENAL TRANSPLANT
     Dosage: 7.50 MG, IUD/QD, ORAL
     Route: 048
     Dates: start: 20040516
  2. DACLIZUMAB(DACLIZUMAB) [Suspect]
     Indication: RENAL TRANSPLANT
     Dosage: 150.00 MG, OTHER, IV NOS
     Route: 042
     Dates: start: 20040517, end: 20040712
  3. MYCOHENOLATE MOFETIL (MYCOPHENOLATE MOFETIL (MYCOPHENOLATE MOFETIL) [Suspect]
     Indication: RENAL TRANSPLANT
     Dosage: 1.00 G, BID, ORAL
     Route: 048
     Dates: start: 20040516
  4. PREDNISOLONE [Suspect]
     Indication: RENAL TRANSPLANT
     Dosage: 250.0 MG, TID, IV NOS
     Route: 042
     Dates: start: 20040516
  5. RAMIPRIL [Concomitant]
  6. METOPROLOL TARTRATE [Concomitant]
  7. AMLODIPINE [Concomitant]

REACTIONS (4)
  - COMPLICATIONS OF TRANSPLANTED KIDNEY [None]
  - MALIGNANT NEOPLASM PROGRESSION [None]
  - PYELONEPHRITIS ACUTE [None]
  - RENAL CELL CARCINOMA STAGE UNSPECIFIED [None]
